FAERS Safety Report 23242642 (Version 1)
Quarter: 2023Q4

REPORT INFORMATION
  Report Type: Spontaneous
  Country: ES (occurrence: ES)
  Receive Date: 20231129
  Receipt Date: 20231129
  Transmission Date: 20240110
  Serious: Yes (Other)
  Sender: FDA-Public Use
  Company Number: ES-PFIZER INC-202300252903

PATIENT
  Age: 60 Year
  Sex: Female

DRUGS (8)
  1. MERCAPTOPURINE [Suspect]
     Active Substance: MERCAPTOPURINE
     Indication: Acute promyelocytic leukaemia
     Dosage: 90 MG/M2/DAY
     Route: 048
  2. IDARUBICIN HYDROCHLORIDE [Suspect]
     Active Substance: IDARUBICIN HYDROCHLORIDE
     Dosage: 12 MG/M2/DAY X 1 DAY
     Route: 065
  3. IDARUBICIN HYDROCHLORIDE [Suspect]
     Active Substance: IDARUBICIN HYDROCHLORIDE
     Indication: Acute promyelocytic leukaemia
     Dosage: 12 MG/M2/DAY X 4 DAYS (INDUCTION TREATMENT)
     Route: 042
  4. IDARUBICIN HYDROCHLORIDE [Suspect]
     Active Substance: IDARUBICIN HYDROCHLORIDE
     Dosage: 5 MG/M2/DAY X 4 DAYS
     Route: 042
  5. METHOTREXATE SODIUM [Suspect]
     Active Substance: METHOTREXATE SODIUM
     Indication: Acute promyelocytic leukaemia
     Dosage: 15 MG/M2/DAY, WEEKLY
     Route: 030
  6. MITOXANTRONE HYDROCHLORIDE [Suspect]
     Active Substance: MITOXANTRONE HYDROCHLORIDE
     Indication: Acute promyelocytic leukaemia
     Dosage: 10 MG/M2/DAY X 5 DAYS
     Route: 065
  7. TRETINOIN [Suspect]
     Active Substance: TRETINOIN
     Indication: Acute promyelocytic leukaemia
     Dosage: 45 MG/M2 EVERY 3 MONTHS
     Route: 048
  8. TRETINOIN [Suspect]
     Active Substance: TRETINOIN
     Dosage: 45 MG/M2 X 40 DAYS
     Route: 048

REACTIONS (2)
  - Myelodysplastic syndrome [Unknown]
  - Second primary malignancy [Unknown]
